FAERS Safety Report 7381400-7 (Version None)
Quarter: 2011Q1

REPORT INFORMATION
  Report Type: 
  Country: None (occurrence: None)
  Receive Date: 20110321
  Receipt Date: 20110309
  Transmission Date: 20110831
  Serious: Yes (Hospitalization, Disabling, Other)
  Sender: FDA-Public Use
  Company Number: VISP-NO-1007S-0381

PATIENT
  Age: 59 Year
  Sex: Female

DRUGS (6)
  1. SEROQUEL [Concomitant]
  2. ENALPRIL (CORODIL) [Concomitant]
  3. CITALOPRAM (AKARIN) [Concomitant]
  4. FELODIPINE [Concomitant]
  5. SALURES-K (CENTYL MED KALIUMKLORID) [Concomitant]
  6. VISIPAQUE [Suspect]
     Indication: LUNG NEOPLASM MALIGNANT
     Dosage: SINGLE DOSE, I.A.
     Route: 014
     Dates: start: 20090904, end: 20090904

REACTIONS (5)
  - DRUG HYPERSENSITIVITY [None]
  - HEPATIC STEATOSIS [None]
  - CHRONIC INFLAMMATORY DEMYELINATING POLYRADICULONEUROPATHY [None]
  - PULMONARY FUNCTION TEST DECREASED [None]
  - GUILLAIN-BARRE SYNDROME [None]
